FAERS Safety Report 6250616-5 (Version None)
Quarter: 2009Q2

REPORT INFORMATION
  Report Type: 
  Country: None (occurrence: None)
  Receive Date: 20090630
  Receipt Date: 20090623
  Transmission Date: 20091009
  Serious: Yes (Hospitalization, Other)
  Sender: FDA-Public Use
  Company Number: US-ASTRAZENECA-2009UW17170

PATIENT
  Age: 85 Year
  Sex: Female
  Weight: 46.7 kg

DRUGS (9)
  1. NEXIUM [Suspect]
     Indication: GASTROOESOPHAGEAL REFLUX DISEASE
     Route: 048
     Dates: start: 20050101
  2. LANOXIN [Concomitant]
  3. COUMADIN [Concomitant]
  4. RAMIPRIL [Concomitant]
     Indication: BLOOD PRESSURE
  5. AMINOPHYLLINE [Concomitant]
     Indication: ASTHMA
  6. ALPRAZOLAM [Concomitant]
     Indication: ANXIETY
  7. FLOVENT [Concomitant]
     Indication: ASTHMA
  8. PROAIR HFA [Concomitant]
     Indication: ASTHMA
  9. ALBUTEROL [Concomitant]
     Indication: ASTHMA

REACTIONS (5)
  - DIARRHOEA [None]
  - DRY MOUTH [None]
  - DYSPEPSIA [None]
  - HEART RATE IRREGULAR [None]
  - URINARY BLADDER HAEMORRHAGE [None]
